FAERS Safety Report 12509745 (Version 1)
Quarter: 2016Q2

REPORT INFORMATION
  Report Type: Spontaneous
  Country: JP (occurrence: JP)
  Receive Date: 20160629
  Receipt Date: 20160629
  Transmission Date: 20160815
  Serious: Yes (Other)
  Sender: FDA-Public Use
  Company Number: JP-PFIZER INC-2016317439

PATIENT

DRUGS (1)
  1. CELECOX [Suspect]
     Active Substance: CELECOXIB
     Dosage: UNK
     Route: 048

REACTIONS (3)
  - Activated partial thromboplastin time abnormal [Unknown]
  - Blood fibrinogen abnormal [Unknown]
  - Haemorrhagic diathesis [Unknown]
